FAERS Safety Report 24792864 (Version 1)
Quarter: 2024Q4

REPORT INFORMATION
  Report Type: Spontaneous
  Country: US (occurrence: US)
  Receive Date: 20241231
  Receipt Date: 20241231
  Transmission Date: 20250114
  Serious: No
  Sender: DR REDDYS
  Company Number: US-DRL-USA-SPO/USA/24/0018828

PATIENT
  Age: 45 Year
  Sex: Female
  Weight: 93 kg

DRUGS (3)
  1. ZIPRASIDONE [Suspect]
     Active Substance: ZIPRASIDONE
     Indication: Mental disorder
     Dosage: 80 MG AT NIGHT
     Route: 065
     Dates: start: 2014
  2. ZIPRASIDONE [Suspect]
     Active Substance: ZIPRASIDONE
     Dosage: 60 MG DURING A DAYTIME
     Route: 065
     Dates: start: 2014
  3. IBUPROFEN [Concomitant]
     Active Substance: IBUPROFEN
     Indication: Product used for unknown indication
     Route: 065

REACTIONS (7)
  - Skin laceration [Recovered/Resolved]
  - Oropharyngeal discomfort [Recovered/Resolved]
  - Headache [Recovered/Resolved]
  - Neck pain [Recovered/Resolved]
  - Hypersomnia [Recovered/Resolved]
  - Pain [Recovered/Resolved]
  - Hypersensitivity [Recovered/Resolved]

NARRATIVE: CASE EVENT DATE: 20231201
